FAERS Safety Report 5848869-8 (Version None)
Quarter: 2008Q3

REPORT INFORMATION
  Report Type: 
  Country: None (occurrence: None)
  Receive Date: 20080818
  Receipt Date: 20080806
  Transmission Date: 20090109
  Serious: Yes (Death)
  Sender: FDA-Public Use
  Company Number: JP-PFIZER INC-2008065657

PATIENT
  Age: 57 Year
  Sex: Male

DRUGS (3)
  1. SOLU-MEDROL [Suspect]
     Indication: DERMATOMYOSITIS
     Dosage: DAILY DOSE:1GRAM
     Route: 042
  2. SOLU-MEDROL [Suspect]
     Indication: INTERSTITIAL LUNG DISEASE
  3. CYCLOSPORINE [Concomitant]

REACTIONS (2)
  - INTERSTITIAL LUNG DISEASE [None]
  - THERAPEUTIC RESPONSE DECREASED [None]
